FAERS Safety Report 8487362-3 (Version None)
Quarter: 2012Q2

REPORT INFORMATION
  Report Type: 
  Country: None (occurrence: None)
  Receive Date: 20120628
  Receipt Date: 20120628
  Transmission Date: 20120825
  Serious: Yes (Life-Threatening, Hospitalization, Disabling)
  Sender: FDA-Public Use
  Company Number: None

PATIENT
  Age: 89 Year
  Sex: Female
  Weight: 78.4723 kg

DRUGS (6)
  1. ASCORBIC ACID [Concomitant]
  2. LININOPRIL [Concomitant]
  3. CELEBREX [Suspect]
     Indication: BACK PAIN
     Dosage: 100-200 BID PRN PO
     Route: 048
     Dates: start: 20120615, end: 20120626
  4. KRILL OIL [Concomitant]
  5. METOPROLOL SUCCINATE [Concomitant]
  6. MULTI-VITAMIN [Concomitant]

REACTIONS (5)
  - ANEURYSM [None]
  - BLOOD PRESSURE INCREASED [None]
  - LACUNAR INFARCTION [None]
  - CEREBROVASCULAR ACCIDENT [None]
  - INTRACRANIAL ANEURYSM [None]
